FAERS Safety Report 13844252 (Version 1)
Quarter: 2017Q3

REPORT INFORMATION
  Report Type: Spontaneous
  Country: MX (occurrence: MX)
  Receive Date: 20170808
  Receipt Date: 20170808
  Transmission Date: 20171127
  Serious: Yes (Other)
  Sender: FDA-Public Use
  Company Number: MX-PFIZER INC-2017342526

PATIENT
  Age: 67 Year
  Sex: Female

DRUGS (2)
  1. STADIUM [Concomitant]
     Indication: LUNG NEOPLASM MALIGNANT
  2. LYRICA [Suspect]
     Active Substance: PREGABALIN
     Indication: PAIN
     Dosage: 75 MG, UNK

REACTIONS (2)
  - Lung neoplasm malignant [Not Recovered/Not Resolved]
  - Agitation [Not Recovered/Not Resolved]
